FAERS Safety Report 8978440 (Version 1)
Quarter: 2012Q4

REPORT INFORMATION
  Report Type: 
  Country: CO (occurrence: CO)
  Receive Date: 20121221
  Receipt Date: 20121221
  Transmission Date: 20130627
  Serious: Yes (Other)
  Sender: FDA-Public Use
  Company Number: CO-PFIZER INC-2012208630

PATIENT
  Age: 12 Year
  Sex: Male

DRUGS (4)
  1. GENOTROPIN [Suspect]
     Indication: IDIOPATHIC SHORT STATURE
     Dosage: 1.4 mg, 1x/day
     Route: 058
     Dates: start: 20100902, end: 201206
  2. GENOTROPIN [Suspect]
     Dosage: 1.6 mg, 1x/day
     Route: 058
     Dates: start: 201206
  3. GENOTROPIN [Suspect]
     Dosage: 1.4 mg, 1x/day
     Route: 058
  4. GENOTROPIN [Suspect]
     Dosage: 1.6 mg, 1x/day
     Route: 058
     Dates: start: 20121130

REACTIONS (4)
  - Epilepsy [Not Recovered/Not Resolved]
  - Migraine [Not Recovered/Not Resolved]
  - Adenoidal disorder [Not Recovered/Not Resolved]
  - Off label use [Unknown]
